FAERS Safety Report 8429547-8 (Version None)
Quarter: 2012Q2

REPORT INFORMATION
  Report Type: 
  Country: None (occurrence: None)
  Receive Date: 20120612
  Receipt Date: 20120604
  Transmission Date: 20120825
  Serious: Yes (Death, Hospitalization)
  Sender: FDA-Public Use
  Company Number: JP-SANOFI-AVENTIS-2011SA076865

PATIENT
  Age: 69 Year
  Sex: Male
  Weight: 76 kg

DRUGS (14)
  1. TS-1 [Suspect]
     Dosage: DAILY DOSE: 120
     Route: 048
     Dates: start: 20111011, end: 20111017
  2. REBAMIPIDE [Concomitant]
     Indication: GASTRITIS
     Route: 048
     Dates: start: 20111011, end: 20111121
  3. ANTITHROMBOTIC AGENTS [Concomitant]
  4. LOXOPROFEN [Concomitant]
     Indication: CANCER PAIN
     Route: 048
     Dates: start: 20111011, end: 20111121
  5. LEVOFLOXACIN [Concomitant]
     Indication: PNEUMONIA
     Route: 048
     Dates: start: 20111115, end: 20111118
  6. DOCETAXEL [Suspect]
     Dosage: STRENGTH: 60 MG
     Route: 041
     Dates: start: 20111108
  7. TS-1 [Suspect]
     Dosage: DAILY DOSE: 120
     Route: 048
     Dates: start: 20110909, end: 20110915
  8. GRANISETRON [Concomitant]
     Indication: ANTIEMETIC SUPPORTIVE CARE
     Dates: start: 20111108
  9. TS-1 [Suspect]
     Dosage: DAILY DOSE: 120
     Route: 048
     Dates: start: 20111025, end: 20111031
  10. TS-1 [Suspect]
     Dosage: DAILY DOSE: 120
     Route: 048
     Dates: start: 20110924, end: 20110930
  11. RABEPRAZOLE SODIUM [Concomitant]
     Route: 048
     Dates: start: 20111011, end: 20111121
  12. DEXAMETHASONE [Concomitant]
     Indication: ANTIEMETIC SUPPORTIVE CARE
     Route: 048
     Dates: start: 20111109, end: 20111111
  13. TS-1 [Suspect]
     Dosage: DAILY DOSE: 120
     Route: 048
     Dates: start: 20111108, end: 20111114
  14. MINOCYCLINE HYDROCHLORIDE [Concomitant]
     Indication: DISEASE PROGRESSION
     Route: 038
     Dates: start: 20110426

REACTIONS (5)
  - ACUTE RESPIRATORY DISTRESS SYNDROME [None]
  - INTERSTITIAL LUNG DISEASE [None]
  - C-REACTIVE PROTEIN INCREASED [None]
  - DYSPNOEA EXERTIONAL [None]
  - ACUTE RESPIRATORY FAILURE [None]
